FAERS Safety Report 6165423-1 (Version None)
Quarter: 2009Q2

REPORT INFORMATION
  Report Type: 
  Country: None (occurrence: None)
  Receive Date: 20090423
  Receipt Date: 20090416
  Transmission Date: 20091009
  Serious: Yes (Other)
  Sender: FDA-Public Use
  Company Number: US-ABBOTT-09P-163-0568566-00

PATIENT
  Sex: Female
  Weight: 118.04 kg

DRUGS (5)
  1. HUMIRA [Suspect]
     Indication: PSORIASIS
     Route: 058
     Dates: start: 20080901, end: 20081228
  2. HUMIRA [Suspect]
     Route: 058
     Dates: start: 20090328
  3. LOTREL [Concomitant]
     Indication: HYPERTENSION
     Dosage: 5/20 MG
     Route: 048
  4. GLUCOPHAGE [Concomitant]
     Indication: TYPE 2 DIABETES MELLITUS
     Route: 048
  5. ZYRTEC [Concomitant]
     Indication: HYPERSENSITIVITY
     Dosage: UNKNOWN
     Route: 048

REACTIONS (10)
  - CYANOSIS [None]
  - EYE IRRITATION [None]
  - EYE SWELLING [None]
  - LACRIMATION INCREASED [None]
  - OCULAR HYPERAEMIA [None]
  - OEDEMA PERIPHERAL [None]
  - PRURITUS [None]
  - RESPIRATORY DISORDER [None]
  - URINARY TRACT INFECTION [None]
  - URTICARIA [None]
